FAERS Safety Report 10084252 (Version 2)
Quarter: 2014Q2

REPORT INFORMATION
  Report Type: Spontaneous
  Country: FR (occurrence: FR)
  Receive Date: 20140417
  Receipt Date: 20140417
  Transmission Date: 20141212
  Serious: Yes (Other)
  Sender: FDA-Public Use
  Company Number: FR-009507513-1404FRA000225

PATIENT
  Sex: Female
  Weight: 66 kg

DRUGS (3)
  1. NEXPLANON [Suspect]
     Indication: CONTRACEPTION
     Dosage: UNK
     Route: 058
     Dates: start: 20120725, end: 201404
  2. PLAQUENIL [Concomitant]
     Indication: SYSTEMIC LUPUS ERYTHEMATOSUS
     Dosage: 200 MG, BID
     Dates: start: 20020702
  3. KEPPRA [Concomitant]
     Indication: EPILEPSY
     Dosage: 500 MG, BID
     Dates: start: 20100302

REACTIONS (5)
  - Drug intolerance [Recovered/Resolved]
  - Uterine haemorrhage [Recovered/Resolved]
  - Anaemia [Unknown]
  - Weight increased [Unknown]
  - Dizziness [Unknown]
